FAERS Safety Report 8024126-9 (Version None)
Quarter: 2012Q1

REPORT INFORMATION
  Report Type: 
  Country: None (occurrence: None)
  Receive Date: 20120105
  Receipt Date: 20120103
  Transmission Date: 20120608
  Serious: Yes (Death, Hospitalization, Other)
  Sender: FDA-Public Use
  Company Number: US-ASTELLAS-2011US008301

PATIENT
  Sex: Female
  Weight: 50 kg

DRUGS (4)
  1. LIDOCAINE [Concomitant]
     Indication: PAIN
     Dosage: UNK, 12 HOURS ON AND 12 HOURS OFF
     Route: 061
  2. MK2206 [Suspect]
     Indication: NON-SMALL CELL LUNG CANCER
     Dosage: 135 MG, WEEKLY
     Route: 065
     Dates: start: 20110701, end: 20110819
  3. MORPHINE SULFATE [Concomitant]
     Indication: PAIN
     Dosage: UNK, Q1H, PRN
     Route: 065
  4. ERLOTINIB HYDROCHLORIDE [Suspect]
     Indication: NON-SMALL CELL LUNG CANCER
     Dosage: 100 MG, UID/QD
     Route: 048
     Dates: start: 20110701, end: 20110823

REACTIONS (7)
  - DYSPNOEA [None]
  - CONSTIPATION [None]
  - CHRONIC OBSTRUCTIVE PULMONARY DISEASE [None]
  - INCORRECT DOSE ADMINISTERED [None]
  - PNEUMONIA [None]
  - STRESS CARDIOMYOPATHY [None]
  - CARDIAC FAILURE [None]
